FAERS Safety Report 24009680 (Version 1)
Quarter: 2024Q2

REPORT INFORMATION
  Report Type: Spontaneous
  Country: PT (occurrence: PT)
  Receive Date: 20240625
  Receipt Date: 20240625
  Transmission Date: 20240716
  Serious: Yes (Hospitalization, Other)
  Sender: FDA-Public Use
  Company Number: None

PATIENT

DRUGS (20)
  1. LACOSAMIDE [Suspect]
     Active Substance: LACOSAMIDE
     Indication: Febrile infection-related epilepsy syndrome
     Dosage: 5 MILLIGRAM/KILOGRAM, ONCE DAILY (QD)
     Route: 065
  2. LEVETIRACETAM [Suspect]
     Active Substance: LEVETIRACETAM
     Indication: Febrile infection-related epilepsy syndrome
     Dosage: 30 MILLIGRAM/KILOGRAM, ONCE DAILY (QD)
     Route: 065
  3. PROPOFOL [Suspect]
     Active Substance: PROPOFOL
     Indication: Febrile infection-related epilepsy syndrome
     Dosage: UNK
     Route: 042
  4. KETAMINE [Suspect]
     Active Substance: KETAMINE
     Indication: Febrile infection-related epilepsy syndrome
     Dosage: UNK
     Route: 065
  5. DIAZEPAM [Suspect]
     Active Substance: DIAZEPAM
     Indication: Febrile infection-related epilepsy syndrome
     Dosage: UNK
     Route: 042
  6. MIDAZOLAM [Suspect]
     Active Substance: MIDAZOLAM
     Indication: Febrile infection-related epilepsy syndrome
     Dosage: UNK
     Route: 065
  7. PHENYTOIN [Suspect]
     Active Substance: PHENYTOIN
     Indication: Status epilepticus
     Dosage: 10 MILLIGRAM/KILOGRAM, ONCE DAILY (QD)
     Route: 065
  8. VALPROIC ACID [Suspect]
     Active Substance: VALPROIC ACID
     Indication: Febrile infection-related epilepsy syndrome
     Dosage: 40 MILLIGRAM/KILOGRAM, ONCE DAILY (QD)
     Route: 065
  9. PERAMPANEL [Suspect]
     Active Substance: PERAMPANEL
     Indication: Febrile infection-related epilepsy syndrome
     Dosage: 4 MILLIGRAM, ONCE DAILY (QD)
     Route: 065
  10. Carfilzomib Dexamethasone [Concomitant]
     Indication: Febrile infection-related epilepsy syndrome
     Dosage: UNK, STARTING ON DAY 10
     Route: 065
  11. CIPROFLOXACIN [Concomitant]
     Active Substance: CIPROFLOXACIN
     Dosage: UNK
     Route: 065
  12. ACYCLOVIR [Concomitant]
     Active Substance: ACYCLOVIR
     Dosage: UNK
     Route: 042
  13. METHYLPREDNISOLONE [Concomitant]
     Active Substance: METHYLPREDNISOLONE
     Indication: Febrile infection-related epilepsy syndrome
     Dosage: 30 MILLIGRAM/KILOGRAM, ONCE DAILY (QD), FOR 5 DAYS, STARTING ON DAY
     Route: 065
  14. CLINDAMYCIN [Concomitant]
     Active Substance: CLINDAMYCIN
     Dosage: UNK
     Route: 065
  15. PYRIDOXINE [Concomitant]
     Active Substance: PYRIDOXINE
     Indication: Febrile infection-related epilepsy syndrome
     Dosage: 50 MILLIGRAM, 2X/DAY (BID), STARTING ON DAY 17
     Route: 042
  16. HUMAN IMMUNOGLOBULIN G [Concomitant]
     Active Substance: HUMAN IMMUNOGLOBULIN G
     Indication: Febrile infection-related epilepsy syndrome
     Dosage: 2 GRAM PER KILOGRAM, DIVIDED BETWEEN DAYS 17 AND 18
     Route: 065
  17. CEFTRIAXONE [Concomitant]
     Active Substance: CEFTRIAXONE\CEFTRIAXONE SODIUM
     Dosage: UNK
     Route: 065
  18. THIOPENTAL [Concomitant]
     Active Substance: THIOPENTAL
     Indication: Febrile infection-related epilepsy syndrome
     Dosage: UNK, DAYS 14 TO 16
     Route: 065
  19. ANAKINRA [Concomitant]
     Active Substance: ANAKINRA
     Indication: Febrile infection-related epilepsy syndrome
     Dosage: 4 MILLIGRAM/KILOGRAM, ONCE DAILY (QD), STARTING ON DAY 17
     Route: 058
  20. CANNABIDIOL [Concomitant]
     Active Substance: CANNABIDIOL
     Indication: Febrile infection-related epilepsy syndrome
     Dosage: 20 MILLIGRAM/KILOGRAM, ONCE DAILY (QD)
     Route: 065

REACTIONS (2)
  - Status epilepticus [Unknown]
  - Condition aggravated [Unknown]
